FAERS Safety Report 5200073-2 (Version None)
Quarter: 2007Q1

REPORT INFORMATION
  Report Type: 
  Country: None (occurrence: None)
  Receive Date: 20070105
  Receipt Date: 20070102
  Transmission Date: 20070707
  Serious: Yes (Hospitalization, Other)
  Sender: FDA-Public Use
  Company Number: US-GLAXOSMITHKLINE-A0628313A

PATIENT
  Age: 58 Year
  Sex: Female

DRUGS (10)
  1. LAMICTAL [Suspect]
     Dosage: 100MG PER DAY
     Route: 048
     Dates: start: 20060601, end: 20060801
  2. XANAX [Concomitant]
  3. ACIDOPHILUS [Concomitant]
  4. ZYRTEC [Concomitant]
  5. DILAUDID [Concomitant]
  6. HYDROXYZINE [Concomitant]
  7. MIRALAX [Concomitant]
  8. SENNOSIDE [Concomitant]
  9. WITCH HAZEL [Concomitant]
  10. FLUOXETINE [Concomitant]

REACTIONS (21)
  - ABDOMINAL DISTENSION [None]
  - ALANINE AMINOTRANSFERASE INCREASED [None]
  - ASCITES [None]
  - ASPARTATE AMINOTRANSFERASE INCREASED [None]
  - BACTERIURIA [None]
  - CACHEXIA [None]
  - CHOLANGITIS SCLEROSING [None]
  - CONTUSION [None]
  - DECREASED APPETITE [None]
  - DIZZINESS [None]
  - FATIGUE [None]
  - HEPATIC CIRRHOSIS [None]
  - LOCAL SWELLING [None]
  - NAUSEA [None]
  - OEDEMA PERIPHERAL [None]
  - PLEURAL EFFUSION [None]
  - PORTAL HYPERTENSION [None]
  - PYREXIA [None]
  - SKIN LESION [None]
  - TEMPERATURE INTOLERANCE [None]
  - WEIGHT INCREASED [None]
